FAERS Safety Report 4918372-8 (Version None)
Quarter: 2006Q1

REPORT INFORMATION
  Report Type: 
  Country: None (occurrence: None)
  Receive Date: 20060222
  Receipt Date: 20060120
  Transmission Date: 20060701
  Serious: No
  Sender: FDA-Public Use
  Company Number: PHHO2006US01748

PATIENT
  Age: 45 Year
  Sex: Female
  Weight: 96.8 kg

DRUGS (2)
  1. DIOVAN HCT [Suspect]
     Indication: HYPERTENSION
     Dosage: NO TREATMENT
  2. ESIDRIX [Suspect]
     Indication: HYPERTENSION
     Dosage: 12.5 MG, QD
     Route: 048
     Dates: start: 20060109, end: 20060110

REACTIONS (1)
  - CHEST DISCOMFORT [None]
